FAERS Safety Report 9321156 (Version 1)
Quarter: 2013Q2

REPORT INFORMATION
  Report Type: Spontaneous
  Country: US (occurrence: US)
  Receive Date: 20130531
  Receipt Date: 20130531
  Transmission Date: 20140414
  Serious: No
  Sender: FDA-Public Use
  Company Number: US-009507513-1305USA016729

PATIENT
  Sex: 0

DRUGS (1)
  1. VICTRELIS [Suspect]
     Dosage: 12 DF, (12 CAPSULES A DAY)
     Route: 048
     Dates: start: 201303

REACTIONS (4)
  - Capsule physical issue [Unknown]
  - Poor quality drug administered [Unknown]
  - Underdose [Unknown]
  - No adverse event [Unknown]
